FAERS Safety Report 17068375 (Version 1)
Quarter: 2019Q4

REPORT INFORMATION
  Report Type: Spontaneous
  Country: US (occurrence: US)
  Receive Date: 20191123
  Receipt Date: 20191123
  Transmission Date: 20200122
  Serious: No
  Sender: FDA-Public Use
  Company Number: US-BION-008263

PATIENT
  Sex: Male
  Weight: 29.21 kg

DRUGS (1)
  1. VITAMIN D UNKNOWN PRODUCT [Suspect]
     Active Substance: VITAMIN D NOS
     Indication: PRODUCT USED FOR UNKNOWN INDICATION

REACTIONS (1)
  - Malabsorption [Unknown]
